FAERS Safety Report 6239631-5 (Version None)
Quarter: 2009Q2

REPORT INFORMATION
  Report Type: 
  Country: None (occurrence: None)
  Receive Date: 20090622
  Receipt Date: 20070601
  Transmission Date: 20091009
  Serious: Yes (Death, Other)
  Sender: FDA-Public Use
  Company Number: US-GENENTECH-242561

PATIENT

DRUGS (2)
  1. BEVACIZUMAB [Suspect]
     Indication: SARCOMA
     Dosage: 15 MG/KG, Q3W
  2. DOXORUBICIN HCL [Suspect]
     Indication: SARCOMA
     Dosage: 75 MG/M2, Q3W
     Route: 042

REACTIONS (16)
  - ABDOMINAL PAIN [None]
  - ANAEMIA [None]
  - ASTHENIA [None]
  - DYSPNOEA [None]
  - ELECTROLYTE IMBALANCE [None]
  - FEBRILE NEUTROPENIA [None]
  - HYPOXIA [None]
  - LEFT VENTRICULAR DYSFUNCTION [None]
  - LEUKOPENIA [None]
  - LIVER FUNCTION TEST ABNORMAL [None]
  - LYMPHOPENIA [None]
  - NEUTROPENIA [None]
  - PNEUMOTHORAX [None]
  - STOMATITIS [None]
  - THROMBOCYTOPENIA [None]
  - THROMBOSIS [None]
